FAERS Safety Report 5039662-7 (Version None)
Quarter: 2006Q2

REPORT INFORMATION
  Report Type: 
  Country: None (occurrence: None)
  Receive Date: 20060601
  Receipt Date: 20060118
  Transmission Date: 20061013
  Serious: No
  Sender: FDA-Public Use
  Company Number: 2006PV007290

PATIENT
  Age: 65 Year
  Sex: Female
  Weight: 102.5129 kg

DRUGS (4)
  1. BYETTA [Suspect]
     Indication: DIABETES MELLITUS NON-INSULIN-DEPENDENT
     Dosage: SEE IMAGE
     Route: 058
     Dates: start: 20051116, end: 20051215
  2. BYETTA [Suspect]
     Indication: DIABETES MELLITUS NON-INSULIN-DEPENDENT
     Dosage: SEE IMAGE
     Route: 058
     Dates: start: 20060117, end: 20060118
  3. KETEK [Suspect]
     Indication: BRONCHITIS
     Dosage: 800 MG;QD;PO
     Route: 048
     Dates: start: 20060117, end: 20060101
  4. PREDNISONE [Concomitant]

REACTIONS (2)
  - BRONCHITIS [None]
  - INJECTION SITE RASH [None]
